FAERS Safety Report 4489047-7 (Version None)
Quarter: 2004Q4

REPORT INFORMATION
  Report Type: 
  Country: None (occurrence: None)
  Receive Date: 20041029
  Receipt Date: 20030404
  Transmission Date: 20050328
  Serious: Yes (Hospitalization)
  Sender: FDA-Public Use
  Company Number: US-MERCK-0304USA00567

PATIENT
  Age: 74 Year
  Sex: Female
  Weight: 49 kg

DRUGS (21)
  1. VIOXX [Suspect]
     Indication: SPINAL OSTEOARTHRITIS
     Route: 048
     Dates: start: 20010111, end: 20010301
  2. VIOXX [Suspect]
     Route: 048
     Dates: start: 20010323, end: 20010301
  3. VIOXX [Suspect]
     Route: 048
     Dates: start: 20010401, end: 20010401
  4. VIOXX [Suspect]
     Indication: LOCALISED OSTEOARTHRITIS
     Route: 048
     Dates: start: 20010111, end: 20010301
  5. VIOXX [Suspect]
     Route: 048
     Dates: start: 20010323, end: 20010301
  6. VIOXX [Suspect]
     Route: 048
     Dates: start: 20010401, end: 20010401
  7. LASIX [Suspect]
     Route: 065
     Dates: start: 20010403, end: 20010401
  8. LASIX [Suspect]
     Route: 042
     Dates: start: 20010327, end: 20010401
  9. LOPRESSOR [Concomitant]
     Route: 065
     Dates: end: 20010404
  10. SALAGEN [Concomitant]
     Indication: DRY MOUTH
     Route: 065
     Dates: end: 20010323
  11. SALAGEN [Concomitant]
     Indication: KERATOCONJUNCTIVITIS SICCA
     Route: 065
     Dates: end: 20010323
  12. PLAQUENIL [Concomitant]
     Route: 065
     Dates: start: 20010126
  13. FEMHRT [Concomitant]
     Route: 065
  14. LOTEMAX [Concomitant]
     Route: 047
  15. TIMOPTIC [Concomitant]
     Route: 047
  16. ADVIL [Concomitant]
     Route: 065
  17. CENTRUM [Concomitant]
     Route: 065
  18. PLAVIX [Concomitant]
     Route: 065
  19. ZOCOR [Concomitant]
     Route: 048
     Dates: end: 20030729
  20. ZOCOR [Concomitant]
     Route: 048
  21. PILOCARPINE [Concomitant]
     Route: 065

REACTIONS (37)
  - ABDOMINAL PAIN UPPER [None]
  - ACUTE PRERENAL FAILURE [None]
  - AORTIC VALVE INCOMPETENCE [None]
  - BACK PAIN [None]
  - BLOOD UREA INCREASED [None]
  - BUNDLE BRANCH BLOCK LEFT [None]
  - CARDIAC FAILURE CONGESTIVE [None]
  - CHANGE OF BOWEL HABIT [None]
  - CHEST PAIN [None]
  - CHOLELITHIASIS [None]
  - CORONARY ARTERY DISEASE [None]
  - DEPRESSION [None]
  - GLAUCOMA [None]
  - HAEMORRHAGE [None]
  - HYPERCHOLESTEROLAEMIA [None]
  - HYPERLIPIDAEMIA [None]
  - HYPERTENSION [None]
  - IRITIS [None]
  - ISCHAEMIC CARDIOMYOPATHY [None]
  - JOINT SPRAIN [None]
  - MITRAL VALVE CALCIFICATION [None]
  - MITRAL VALVE INCOMPETENCE [None]
  - MITRAL VALVE SCLEROSIS [None]
  - MYOCARDIAL INFARCTION [None]
  - NEPHROPATHY TOXIC [None]
  - ORAL FUNGAL INFECTION [None]
  - ORTHOSTATIC HYPOTENSION [None]
  - PERICARDIAL EFFUSION [None]
  - PNEUMONITIS [None]
  - PULMONARY OEDEMA [None]
  - PULMONARY VALVE INCOMPETENCE [None]
  - RESPIRATORY DISTRESS [None]
  - ROSACEA [None]
  - ROTATOR CUFF SYNDROME [None]
  - SYNOVITIS [None]
  - TRICUSPID VALVE INCOMPETENCE [None]
  - VENTRICULAR DYSFUNCTION [None]
